FAERS Safety Report 15038387 (Version 2)
Quarter: 2018Q4

REPORT INFORMATION
  Report Type: Spontaneous
  Country: US (occurrence: US)
  Receive Date: 20180620
  Receipt Date: 20181218
  Transmission Date: 20190204
  Serious: Yes (Disabling, Other)
  Sender: FDA-Public Use
  Company Number: US-OTSUKA-2018_010457

PATIENT
  Sex: Male

DRUGS (4)
  1. ABILIFY [Suspect]
     Active Substance: ARIPIPRAZOLE
     Indication: ANXIETY
     Dosage: 10 MG, QD
     Route: 065
     Dates: end: 2016
  2. ABILIFY [Suspect]
     Active Substance: ARIPIPRAZOLE
     Indication: MAJOR DEPRESSION
     Dosage: 5 MG, QD
     Route: 065
  3. ABILIFY [Suspect]
     Active Substance: ARIPIPRAZOLE
     Indication: BIPOLAR DISORDER
     Dosage: 2 MG, QD
     Route: 065
     Dates: start: 2009
  4. ABILIFY [Suspect]
     Active Substance: ARIPIPRAZOLE
     Indication: POST-TRAUMATIC STRESS DISORDER

REACTIONS (18)
  - Suicide attempt [Recovered/Resolved]
  - Obsessive-compulsive disorder [Recovered/Resolved]
  - Hypersexuality [Unknown]
  - Anhedonia [Unknown]
  - Disability [Unknown]
  - Emotional distress [Unknown]
  - Condition aggravated [Recovered/Resolved]
  - Economic problem [Unknown]
  - Injury [Unknown]
  - Theft [Unknown]
  - Anxiety [Unknown]
  - Condition aggravated [Unknown]
  - Pain [Unknown]
  - Compulsive shopping [Recovered/Resolved]
  - Product use in unapproved indication [Unknown]
  - Suicidal ideation [Recovered/Resolved]
  - Sexual dysfunction [Recovered/Resolved]
  - Gambling disorder [Recovered/Resolved]

NARRATIVE: CASE EVENT DATE: 2009
